FAERS Safety Report 24212141 (Version 1)
Quarter: 2024Q3

REPORT INFORMATION
  Report Type: Spontaneous
  Country: ES (occurrence: ES)
  Receive Date: 20240815
  Receipt Date: 20240815
  Transmission Date: 20241016
  Serious: Yes (Life-Threatening, Hospitalization)
  Sender: CHEPLAPHARM
  Company Number: None

PATIENT
  Age: 80 Year
  Sex: Female
  Weight: 35 kg

DRUGS (4)
  1. CLONAZEPAM [Interacting]
     Active Substance: CLONAZEPAM
     Indication: Anxiety
     Dosage: 0-0-1?DAILY DOSE: 0.5 MILLIGRAM
     Route: 048
     Dates: start: 20210719
  2. DIAZEPAM [Interacting]
     Active Substance: DIAZEPAM
     Indication: Dystonia
     Dosage: 5MG 1-0-1/2?DAILY DOSE: 7.5 MILLIGRAM
     Route: 048
     Dates: start: 20240314, end: 20240725
  3. ARTANE [Concomitant]
     Active Substance: TRIHEXYPHENIDYL HYDROCHLORIDE
     Indication: Dystonia
     Dosage: 2MG/12H?DAILY DOSE: 4 MILLIGRAM
     Route: 048
     Dates: start: 20240205
  4. Fentaline [Concomitant]
     Indication: Dystonia

REACTIONS (8)
  - Depressed level of consciousness [Recovered/Resolved]
  - Overdose [Unknown]
  - Pneumonia [Unknown]
  - Cardiac failure congestive [Unknown]
  - Atrial fibrillation [Unknown]
  - Dysphagia [Unknown]
  - Hypercapnia [Unknown]
  - Hypoxia [Unknown]

NARRATIVE: CASE EVENT DATE: 20240725
